FAERS Safety Report 11411049 (Version 2)
Quarter: 2015Q3

REPORT INFORMATION
  Report Type: Spontaneous
  Country: US (occurrence: US)
  Receive Date: 20150821
  Receipt Date: 20150903
  Transmission Date: 20151125
  Serious: No
  Sender: FDA-Public Use
  Company Number: US-ELI_LILLY_AND_COMPANY-US201003003099

PATIENT
  Age: 37 Year
  Sex: Female

DRUGS (13)
  1. HUMULIN N [Suspect]
     Active Substance: INSULIN HUMAN
     Dosage: 25 U, EACH MORNING
     Dates: start: 2010
  2. HUMULIN N [Suspect]
     Active Substance: INSULIN HUMAN
     Dosage: 40 U, EACH EVENING
     Dates: start: 2010
  3. HUMULIN N [Suspect]
     Active Substance: INSULIN HUMAN
     Dosage: 20 U, EACH MORNING
     Dates: start: 200910
  4. HUMALOG [Suspect]
     Active Substance: INSULIN LISPRO
     Indication: DIABETES MELLITUS
     Dosage: 20 U, EACH MORNING
     Dates: start: 200910
  5. HUMULIN N [Suspect]
     Active Substance: INSULIN HUMAN
     Dosage: 40 U, EACH EVENING
     Dates: start: 2010
  6. HUMULIN N [Suspect]
     Active Substance: INSULIN HUMAN
     Dosage: 20 U, EACH MORNING
     Dates: start: 200910
  7. HUMULIN N [Suspect]
     Active Substance: INSULIN HUMAN
     Indication: DIABETES MELLITUS
     Dosage: 30 U, EACH EVENING
     Dates: start: 200910
  8. HUMULIN N [Suspect]
     Active Substance: INSULIN HUMAN
     Dosage: 30 U, EACH EVENING
     Dates: start: 200910
  9. HUMULIN N [Suspect]
     Active Substance: INSULIN HUMAN
     Dosage: 25 U, EACH MORNING
     Dates: start: 2010
  10. HUMULIN N [Suspect]
     Active Substance: INSULIN HUMAN
     Dosage: 35 U, EACH EVENING
     Dates: start: 2010
  11. HUMULIN N [Suspect]
     Active Substance: INSULIN HUMAN
     Dosage: 35 U, EACH EVENING
     Dates: start: 2010
  12. HUMALOG [Suspect]
     Active Substance: INSULIN LISPRO
     Dosage: 15 U, OTHER
     Dates: start: 200910
  13. HUMALOG [Suspect]
     Active Substance: INSULIN LISPRO
     Dosage: 15 U, EACH EVENING
     Dates: start: 200910

REACTIONS (5)
  - Blood glucose increased [Not Recovered/Not Resolved]
  - Drug ineffective [Not Recovered/Not Resolved]
  - Exposure during pregnancy [Not Recovered/Not Resolved]
  - Anxiety [Unknown]
  - Poor quality drug administered [Not Recovered/Not Resolved]

NARRATIVE: CASE EVENT DATE: 2009
